FAERS Safety Report 9016140 (Version 1)
Quarter: 2013Q1

REPORT INFORMATION
  Report Type: Spontaneous
  Country: US (occurrence: US)
  Receive Date: 20130116
  Receipt Date: 20130116
  Transmission Date: 20140127
  Serious: Yes (Other)
  Sender: FDA-Public Use
  Company Number: US-009507513-1301USA003740

PATIENT
  Age: 31 Year
  Sex: Female

DRUGS (5)
  1. SINGULAIR [Suspect]
  2. EFFEXOR [Suspect]
     Indication: DEPRESSION
     Route: 048
  3. LYSANXIA [Suspect]
     Route: 048
  4. IBUPROFEN [Suspect]
  5. SPRYCEL [Suspect]
     Indication: CHRONIC MYELOID LEUKAEMIA
     Route: 048

REACTIONS (3)
  - Abortion spontaneous [Unknown]
  - Pregnancy [Unknown]
  - Exposure during pregnancy [Unknown]
